FAERS Safety Report 7911398-1 (Version None)
Quarter: 2011Q4

REPORT INFORMATION
  Report Type: 
  Country: None (occurrence: None)
  Receive Date: 20111114
  Receipt Date: 20111104
  Transmission Date: 20120403
  Serious: Yes (Other)
  Sender: FDA-Public Use
  Company Number: US-ASTELLAS-2011US007336

PATIENT
  Sex: Male
  Weight: 75 kg

DRUGS (4)
  1. PROGRAF [Suspect]
     Indication: RENAL TRANSPLANT
     Dosage: 1 MG, BID
     Route: 048
     Dates: start: 19980101
  2. ARAVA [Concomitant]
     Indication: RENAL TRANSPLANT
     Dosage: 40 MG, UID/QD
     Route: 048
     Dates: start: 19980101
  3. PROGRAF [Suspect]
     Indication: PANCREAS TRANSPLANT
  4. PREDNISONE TAB [Concomitant]
     Indication: RENAL TRANSPLANT
     Dosage: 5 MG, UID/QD
     Route: 048
     Dates: start: 19980101

REACTIONS (4)
  - OFF LABEL USE [None]
  - PANCREAS TRANSPLANT [None]
  - DIALYSIS [None]
  - RENAL TRANSPLANT [None]
